FAERS Safety Report 15898744 (Version 1)
Quarter: 2019Q1

REPORT INFORMATION
  Report Type: Spontaneous
  Country: US (occurrence: US)
  Receive Date: 20190201
  Receipt Date: 20190201
  Transmission Date: 20190417
  Serious: No
  Sender: FDA-Public Use
  Company Number: US-JNJFOC-20190113519

PATIENT
  Sex: Female

DRUGS (2)
  1. MENS ROGAINE EXTRA STRENGTH [Suspect]
     Active Substance: MINOXIDIL
     Route: 061
  2. MENS ROGAINE EXTRA STRENGTH [Suspect]
     Active Substance: MINOXIDIL
     Indication: ALOPECIA
     Dosage: DEPENDS ON HOW MUCH COMES OUT WITH ONE SQUIRT, ONLY USE IT ONCE A DAY
     Route: 061
     Dates: start: 20180808

REACTIONS (3)
  - Product packaging issue [Unknown]
  - Product use issue [Unknown]
  - Intentional product misuse [Unknown]
